FAERS Safety Report 12920499 (Version 1)
Quarter: 2016Q4

REPORT INFORMATION
  Report Type: Spontaneous
  Country: US (occurrence: US)
  Receive Date: 20161106
  Receipt Date: 20161106
  Transmission Date: 20170207
  Serious: No
  Sender: FDA-Public Use
  Company Number: None

PATIENT
  Age: 52 Year
  Sex: Female
  Weight: 76.5 kg

DRUGS (22)
  1. VENTOLIN HFA [Concomitant]
     Active Substance: ALBUTEROL SULFATE
  2. DICLOFENAC DR [Concomitant]
  3. FLUCONAZOLE TABLET USP MG CITRON [Suspect]
     Active Substance: FLUCONAZOLE
     Indication: VULVOVAGINAL MYCOTIC INFECTION
     Dosage: ?          OTHER FREQUENCY:ONE TIME;?
     Route: 048
     Dates: start: 20161030
  4. SPINAL SIMULATOR [Concomitant]
  5. VALACYCLOVIR [Concomitant]
     Active Substance: VALACYCLOVIR HYDROCHLORIDE
  6. BETAMETHASONE. [Concomitant]
     Active Substance: BETAMETHASONE
  7. VOLTAREN [Concomitant]
     Active Substance: DICLOFENAC SODIUM
  8. VITAMIN D3 [Concomitant]
     Active Substance: CHOLECALCIFEROL
  9. CARISOPRODOL. [Concomitant]
     Active Substance: CARISOPRODOL
  10. TRAZODONE [Concomitant]
     Active Substance: TRAZODONE HYDROCHLORIDE
  11. CLOTRIMAZOLE. [Concomitant]
     Active Substance: CLOTRIMAZOLE
  12. MULTIVITAMIN [Concomitant]
     Active Substance: VITAMINS
  13. PANTOPRAZOLE [Concomitant]
     Active Substance: PANTOPRAZOLE SODIUM
  14. RED YEAST RICE [Concomitant]
     Active Substance: DIETARY SUPPLEMENT
  15. DICYCLOMINE [Concomitant]
     Active Substance: DICYCLOMINE HYDROCHLORIDE
  16. ZOVIA [Concomitant]
     Active Substance: ETHINYL ESTRADIOL\ETHYNODIOL DIACETATE
  17. HYDROMORPHONE [Concomitant]
     Active Substance: HYDROMORPHONE
  18. ALOE VERA WITH CACTUS [Concomitant]
  19. CALCIUM [Concomitant]
     Active Substance: CALCIUM
  20. METFORMIN [Concomitant]
     Active Substance: METFORMIN HYDROCHLORIDE
  21. FAMOTIDINE. [Concomitant]
     Active Substance: FAMOTIDINE
  22. FLUTICASONE PROPIONATE. [Concomitant]
     Active Substance: FLUTICASONE PROPIONATE

REACTIONS (2)
  - Urticaria [None]
  - Swelling face [None]

NARRATIVE: CASE EVENT DATE: 20161030
